FAERS Safety Report 25989010 (Version 1)
Quarter: 2025Q4

REPORT INFORMATION
  Report Type: Report from Study
  Country: US (occurrence: US)
  Receive Date: 20251103
  Receipt Date: 20251103
  Transmission Date: 20260117
  Serious: Yes (Hospitalization, Other)
  Sender: ABBVIE
  Company Number: US-ABBVIE-6528665

PATIENT
  Sex: Female

DRUGS (1)
  1. ELAHERE [Suspect]
     Active Substance: MIRVETUXIMAB SORAVTANSINE-GYNX
     Indication: Fallopian tube cancer
     Route: 042

REACTIONS (9)
  - Thrombosis [Unknown]
  - Anosmia [Unknown]
  - Vision blurred [Unknown]
  - Neuropathy peripheral [Unknown]
  - Gait inability [Unknown]
  - Blindness [Unknown]
  - Ageusia [Unknown]
  - Pneumonia [Unknown]
  - Dysstasia [Unknown]
